FAERS Safety Report 6644075-8 (Version None)
Quarter: 2010Q1

REPORT INFORMATION
  Report Type: 
  Country: None (occurrence: None)
  Receive Date: 20100322
  Receipt Date: 20100308
  Transmission Date: 20100710
  Serious: Yes (Other)
  Sender: FDA-Public Use
  Company Number: PHEH2007US15448

PATIENT
  Sex: Female
  Weight: 97.052 kg

DRUGS (18)
  1. ZOMETA [Suspect]
     Indication: BONE NEOPLASM MALIGNANT
     Dosage: 4 MG, QMO
     Route: 042
     Dates: end: 20070101
  2. AREDIA [Suspect]
     Indication: METASTASES TO BONE
     Route: 042
  3. DEXAMETHASONE [Concomitant]
     Dosage: UNK
  4. PERIDEX [Concomitant]
  5. CHEMOTHERAPEUTICS NOS [Concomitant]
  6. WELLBUTRIN SR [Concomitant]
     Dosage: 150 MG, 1 TAB 2 TIMES DAILY
  7. CYMBALTA [Concomitant]
     Dosage: 60 MG
  8. MORPHINE [Concomitant]
     Dosage: 15 MG
  9. PERCOCET [Concomitant]
     Dosage: 5/325
  10. VALIUM [Concomitant]
     Dosage: 5 MG
  11. HYDROCHLOROTHIAZIDE [Concomitant]
     Dosage: 15.5 MG
  12. ATENOLOL [Concomitant]
     Dosage: 25, 1 PER DAY
  13. MOBIC [Concomitant]
     Dosage: 7.5 MG, 1 TWICE DAILY
  14. DOXYCYCLINE [Concomitant]
     Dosage: 100 MG FOR 10 DAYS
  15. PRILOSEC [Concomitant]
     Dosage: UNK
  16. TIZANIDINE HCL [Concomitant]
     Dosage: 4 MG AS NEEDED
  17. NEXIUM [Concomitant]
     Dosage: UNK
  18. NEURONTIN [Concomitant]
     Dosage: UNK

REACTIONS (35)
  - ABSCESS DRAINAGE [None]
  - ANHEDONIA [None]
  - ANXIETY [None]
  - BACK INJURY [None]
  - BACK PAIN [None]
  - BONE DISORDER [None]
  - BONE PAIN [None]
  - CHOLECYSTECTOMY [None]
  - COMPRESSION FRACTURE [None]
  - DENTAL CARIES [None]
  - DIVERTICULITIS [None]
  - DYSPNOEA [None]
  - GASTROOESOPHAGEAL REFLUX DISEASE [None]
  - HYPOTHYROIDISM [None]
  - IMPAIRED HEALING [None]
  - INJURY [None]
  - INTERVERTEBRAL DISC PROTRUSION [None]
  - JOINT SWELLING [None]
  - MUSCULOSKELETAL DISCOMFORT [None]
  - NEPHROLITHIASIS [None]
  - OSTEOARTHRITIS [None]
  - OSTEONECROSIS [None]
  - OSTEOPENIA [None]
  - OSTEOPOROSIS [None]
  - PAIN [None]
  - PAIN IN EXTREMITY [None]
  - POLLAKIURIA [None]
  - RENAL FAILURE [None]
  - RESTLESS LEGS SYNDROME [None]
  - ROAD TRAFFIC ACCIDENT [None]
  - TOOTH DISORDER [None]
  - TOOTH EXTRACTION [None]
  - TREATMENT NONCOMPLIANCE [None]
  - VERTEBROPLASTY [None]
  - WEIGHT DECREASED [None]
